FAERS Safety Report 14681350 (Version 2)
Quarter: 2018Q2

REPORT INFORMATION
  Report Type: Spontaneous
  Country: DE (occurrence: DE)
  Receive Date: 20180326
  Receipt Date: 20180615
  Transmission Date: 20180711
  Serious: Yes (Hospitalization)
  Sender: FDA-Public Use
  Company Number: DE-BAUSCH-BL-2018-006569

PATIENT
  Age: 89 Year
  Sex: Male

DRUGS (4)
  1. ENABETA COMP [Suspect]
     Active Substance: ENALAPRIL MALEATE\HYDROCHLOROTHIAZIDE
     Indication: PRODUCT USED FOR UNKNOWN INDICATION
     Dosage: FOR AT LEAST 20 YEARS
     Route: 048
  2. ENALAPRIL MALEATE PLUS HYDROCHLOROTHIAZIDE [Suspect]
     Active Substance: ENALAPRIL MALEATE\HYDROCHLOROTHIAZIDE
     Dosage: 1 DF, QD, FOR AT LEAST 20 YEARS
     Route: 048
     Dates: start: 20180103
  3. AMLODIPINE [Suspect]
     Active Substance: AMLODIPINE BESYLATE
     Indication: HYPERTENSION
     Route: 065
  4. ENALAPRIL MALEATE PLUS HYDROCHLOROTHIAZIDE [Suspect]
     Active Substance: ENALAPRIL MALEATE\HYDROCHLOROTHIAZIDE
     Indication: HYPERTENSION
     Dosage: PRESCRIBED 1/2 TABLET IN THE MORNING AND ALSO 1/2 TABLET IN THE EVENINGS IF BLOOD PRESSURE
     Route: 048
     Dates: start: 20180103

REACTIONS (3)
  - Incorrect dose administered [Unknown]
  - Blood pressure decreased [Unknown]
  - Loss of consciousness [Unknown]
